FAERS Safety Report 6294962-8 (Version None)
Quarter: 2009Q3

REPORT INFORMATION
  Report Type: 
  Country: None (occurrence: None)
  Receive Date: 20090731
  Receipt Date: 20090731
  Transmission Date: 20100115
  Serious: Yes (Other)
  Sender: FDA-Public Use
  Company Number: None

PATIENT
  Age: 55 Year
  Sex: Female
  Weight: 99.7913 kg

DRUGS (2)
  1. THYROID TAB [Suspect]
     Indication: AUTOIMMUNE THYROIDITIS
     Dosage: 90MG DAILY PO, APPROXIMATLEY 5 YEARS
     Route: 048
  2. THYROID TAB [Suspect]
     Indication: AUTOIMMUNE THYROIDITIS
     Dosage: 2-30MG DAILY PO, APPROXIMATELY 5 YEARS
     Route: 048

REACTIONS (3)
  - HYPOTHYROIDISM [None]
  - THYROXINE INCREASED [None]
  - TRI-IODOTHYRONINE DECREASED [None]
